FAERS Safety Report 6046969-3 (Version None)
Quarter: 2009Q1

REPORT INFORMATION
  Report Type: 
  Country: None (occurrence: None)
  Receive Date: 20090109
  Receipt Date: 20081229
  Transmission Date: 20090719
  Serious: Yes (Hospitalization)
  Sender: FDA-Public Use
  Company Number: 200814489

PATIENT
  Age: 74 Year
  Sex: Female
  Weight: 50 kg

DRUGS (9)
  1. PRIVIGEN [Suspect]
     Indication: GUILLAIN-BARRE SYNDROME
     Dosage: 30 G DAILY IV; 30 G DAILY IV; 30 G DAILY IV; 30 G DAILY IV; 30 G DAILY IV
     Route: 042
     Dates: start: 20081211, end: 20081215
  2. PRIVIGEN [Suspect]
     Indication: GUILLAIN-BARRE SYNDROME
     Dosage: 30 G DAILY IV; 30 G DAILY IV; 30 G DAILY IV; 30 G DAILY IV; 30 G DAILY IV
     Route: 042
     Dates: start: 20081217, end: 20081219
  3. PRIVIGEN [Suspect]
     Indication: GUILLAIN-BARRE SYNDROME
     Dosage: 30 G DAILY IV; 30 G DAILY IV; 30 G DAILY IV; 30 G DAILY IV; 30 G DAILY IV
     Route: 042
     Dates: start: 20081224, end: 20081224
  4. PRIVIGEN [Suspect]
     Indication: GUILLAIN-BARRE SYNDROME
     Dosage: 30 G DAILY IV; 30 G DAILY IV; 30 G DAILY IV; 30 G DAILY IV; 30 G DAILY IV
     Route: 042
     Dates: start: 20081226, end: 20081227
  5. PRIVIGEN [Suspect]
     Indication: GUILLAIN-BARRE SYNDROME
     Dosage: 30 G DAILY IV; 30 G DAILY IV; 30 G DAILY IV; 30 G DAILY IV; 30 G DAILY IV
     Route: 042
     Dates: start: 20081229
  6. COUMADIN [Concomitant]
  7. CYMBALTA [Concomitant]
  8. SENOKOT [Concomitant]
  9. MORPHINE [Concomitant]

REACTIONS (5)
  - ALANINE AMINOTRANSFERASE INCREASED [None]
  - ASPARTATE AMINOTRANSFERASE INCREASED [None]
  - BLOOD ALKALINE PHOSPHATASE INCREASED [None]
  - DRUG DOSE OMISSION [None]
  - INTERNATIONAL NORMALISED RATIO INCREASED [None]
